FAERS Safety Report 25633359 (Version 1)
Quarter: 2025Q3

REPORT INFORMATION
  Report Type: Spontaneous
  Country: EU (occurrence: EU)
  Receive Date: 20250801
  Receipt Date: 20250801
  Transmission Date: 20251021
  Serious: Yes (Life-Threatening, Hospitalization, Other)
  Sender: TORRENT PHARMA INC.
  Company Number: EU-MLMSERVICE-20250717-PI583463-00295-1

PATIENT

DRUGS (1)
  1. SERTRALINE [Suspect]
     Active Substance: SERTRALINE HYDROCHLORIDE
     Indication: Product used for unknown indication
     Route: 064

REACTIONS (3)
  - Newborn persistent pulmonary hypertension [Recovering/Resolving]
  - Respiratory failure [Recovering/Resolving]
  - Foetal exposure during pregnancy [Unknown]
